FAERS Safety Report 20526342 (Version 1)
Quarter: 2022Q1

REPORT INFORMATION
  Report Type: Spontaneous
  Country: US (occurrence: None)
  Receive Date: 20220228
  Receipt Date: 20220228
  Transmission Date: 20220424
  Serious: Yes (Other)
  Sender: FDA-Public Use
  Company Number: None

PATIENT
  Age: 73 Year
  Sex: Female
  Weight: 69.9 kg

DRUGS (14)
  1. MIRTAZAPINE [Suspect]
     Active Substance: MIRTAZAPINE
     Indication: Decreased appetite
     Dosage: OTHER FREQUENCY : AT BEDTIME;?
     Route: 048
     Dates: start: 20220226, end: 20220226
  2. NORVASC [Concomitant]
     Active Substance: AMLODIPINE BESYLATE
  3. BUMEX [Concomitant]
     Active Substance: BUMETANIDE
  4. PEPCID [Concomitant]
     Active Substance: FAMOTIDINE
  5. INSULIN LISPRO [Concomitant]
     Active Substance: INSULIN LISPRO
  6. IMDUR [Concomitant]
     Active Substance: ISOSORBIDE MONONITRATE
  7. SYNTHROID [Concomitant]
     Active Substance: LEVOTHYROXINE SODIUM
  8. LISINOPRIL [Concomitant]
     Active Substance: LISINOPRIL
  9. PROTONIX [Concomitant]
     Active Substance: PANTOPRAZOLE SODIUM
  10. POLYETHYLENE GLYCOLS [Concomitant]
     Active Substance: POLYETHYLENE GLYCOLS
  11. SPIRONOLACTONE [Concomitant]
     Active Substance: SPIRONOLACTONE
  12. NORCO [Concomitant]
     Active Substance: ACETAMINOPHEN\HYDROCODONE BITARTRATE
  13. PULMICORT TURBUHALER [Concomitant]
     Active Substance: BUDESONIDE
  14. DUONEBS [Concomitant]

REACTIONS (2)
  - Off label use [None]
  - Psychotic disorder [None]

NARRATIVE: CASE EVENT DATE: 20220226
